FAERS Safety Report 6328474-X (Version None)
Quarter: 2009Q3

REPORT INFORMATION
  Report Type: 
  Country: None (occurrence: None)
  Receive Date: 20090825
  Receipt Date: 20090612
  Transmission Date: 20100115
  Serious: No
  Sender: FDA-Public Use
  Company Number: US-ABBOTT-09P-163-0579623-00

PATIENT
  Sex: Female
  Weight: 92.162 kg

DRUGS (6)
  1. SYNTHROID [Suspect]
     Indication: GOITRE
     Dates: start: 20080101
  2. ZETIA [Concomitant]
     Indication: BLOOD TRIGLYCERIDES INCREASED
  3. CRESTOR [Concomitant]
     Indication: BLOOD TRIGLYCERIDES INCREASED
  4. HYZAAR [Concomitant]
     Indication: HYPERTENSION
     Dosage: 100/25 DAILY
  5. VIT D [Concomitant]
     Indication: DRUG USE FOR UNKNOWN INDICATION
  6. VITAMIN B-12 [Concomitant]
     Indication: DRUG USE FOR UNKNOWN INDICATION
     Route: 050

REACTIONS (1)
  - WEIGHT INCREASED [None]
